FAERS Safety Report 5120603-9 (Version None)
Quarter: 2006Q3

REPORT INFORMATION
  Report Type: 
  Country: None (occurrence: None)
  Receive Date: 20060928
  Receipt Date: 20060918
  Transmission Date: 20061208
  Serious: Yes (Other)
  Sender: FDA-Public Use
  Company Number: 2006113600

PATIENT
  Age: 27 Year
  Sex: Female

DRUGS (1)
  1. ZOLOFT [Suspect]
     Dosage: 50 MG (1 D)
     Dates: end: 20060918

REACTIONS (4)
  - ABDOMINAL PAIN [None]
  - HAEMATEMESIS [None]
  - STRESS [None]
  - ULCER [None]
